FAERS Safety Report 10343147 (Version 3)
Quarter: 2014Q3

REPORT INFORMATION
  Report Type: Spontaneous
  Country: US (occurrence: US)
  Receive Date: 20140725
  Receipt Date: 20140808
  Transmission Date: 20150326
  Serious: Yes (Other)
  Sender: FDA-Public Use
  Company Number: US-TEVA-496412USA

PATIENT
  Age: 45 Year
  Sex: Female

DRUGS (1)
  1. COPAXONE [Suspect]
     Active Substance: GLATIRAMER ACETATE
     Indication: MULTIPLE SCLEROSIS
     Dates: start: 20140309

REACTIONS (4)
  - Injection site pain [Recovering/Resolving]
  - Injection site scar [Recovering/Resolving]
  - Injection site bruising [Recovering/Resolving]
  - Injection site necrosis [Recovered/Resolved]

NARRATIVE: CASE EVENT DATE: 201407
